FAERS Safety Report 6089411-9 (Version None)
Quarter: 2009Q1

REPORT INFORMATION
  Report Type: 
  Country: None (occurrence: None)
  Receive Date: 20090224
  Receipt Date: 20090219
  Transmission Date: 20090719
  Serious: Yes (Other)
  Sender: FDA-Public Use
  Company Number: IT-ROCHE-609554

PATIENT
  Sex: Male

DRUGS (1)
  1. ROCEPHIN [Suspect]
     Indication: ABSCESS
     Dosage: FORM: VIAL, DOSE REGIMEN: 1XOD
     Route: 030
     Dates: start: 20081212, end: 20081213

REACTIONS (1)
  - RHABDOMYOLYSIS [None]
